FAERS Safety Report 6676340-2 (Version None)
Quarter: 2010Q2

REPORT INFORMATION
  Report Type: 
  Country: None (occurrence: None)
  Receive Date: 20100408
  Receipt Date: 20100329
  Transmission Date: 20101027
  Serious: Yes (Life-Threatening, Hospitalization)
  Sender: FDA-Public Use
  Company Number: 2010EN000113

PATIENT
  Age: 60 Year
  Sex: Female
  Weight: 78 kg

DRUGS (5)
  1. ONCASPAR [Suspect]
     Indication: B PRECURSOR TYPE ACUTE LEUKAEMIA
     Dosage: 4625 IU;X1;IV, 4500 IU; X1; IV, 4400 IU;X1;IV
     Route: 042
     Dates: start: 20100104, end: 20100104
  2. ONCASPAR [Suspect]
     Indication: B PRECURSOR TYPE ACUTE LEUKAEMIA
     Dosage: 4625 IU;X1;IV, 4500 IU; X1; IV, 4400 IU;X1;IV
     Route: 042
     Dates: start: 20100201, end: 20100201
  3. ONCASPAR [Suspect]
     Indication: B PRECURSOR TYPE ACUTE LEUKAEMIA
     Dosage: 4625 IU;X1;IV, 4500 IU; X1; IV, 4400 IU;X1;IV
     Route: 042
     Dates: start: 20100311, end: 20100311
  4. PROGESTERONE [Suspect]
     Indication: DRUG USE FOR UNKNOWN INDICATION
     Dosage: 100 MG;QD;PO
     Route: 048
  5. VIVELLE [Suspect]
     Indication: DRUG USE FOR UNKNOWN INDICATION
     Dosage: 0.1 MG;QD;PO
     Route: 048

REACTIONS (2)
  - PULMONARY EMBOLISM [None]
  - RENAL INFARCT [None]
